FAERS Safety Report 16705346 (Version 2)
Quarter: 2019Q4

REPORT INFORMATION
  Report Type: Spontaneous
  Country: CA (occurrence: CA)
  Receive Date: 20190815
  Receipt Date: 20191121
  Transmission Date: 20200122
  Serious: Yes (Hospitalization, Other)
  Sender: FDA-Public Use
  Company Number: CA-ROCHE-2376443

PATIENT
  Age: 50 Year
  Sex: Female

DRUGS (12)
  1. XOLAIR [Suspect]
     Active Substance: OMALIZUMAB
     Route: 058
     Dates: start: 20190108
  2. APO ROSUVASTATIN [Concomitant]
     Active Substance: ROSUVASTATIN CALCIUM
     Indication: HYPERLIPIDAEMIA
     Route: 048
  3. XOLAIR [Suspect]
     Active Substance: OMALIZUMAB
     Route: 058
     Dates: start: 20180326
  4. MORPHINE SULPHATE [Concomitant]
     Active Substance: MORPHINE SULFATE
     Indication: PAIN
     Route: 048
     Dates: start: 2014
  5. CLONIDINE. [Concomitant]
     Active Substance: CLONIDINE
     Indication: PRODUCT USED FOR UNKNOWN INDICATION
     Route: 048
     Dates: start: 1998
  6. GABAPENTIN. [Concomitant]
     Active Substance: GABAPENTIN
     Indication: PAIN
     Route: 048
     Dates: start: 2012
  7. ADVAIR HFA [Concomitant]
     Active Substance: FLUTICASONE PROPIONATE\SALMETEROL XINAFOATE
     Indication: ASTHMA
     Route: 055
     Dates: start: 201712
  8. VENTOLIN [Concomitant]
     Active Substance: ALBUTEROL SULFATE
     Indication: ASTHMA
     Route: 055
     Dates: start: 2008
  9. OXYCODONE [Concomitant]
     Active Substance: OXYCODONE
     Indication: PAIN
     Route: 048
     Dates: start: 2016
  10. XOLAIR [Suspect]
     Active Substance: OMALIZUMAB
     Indication: ASTHMA
     Route: 058
     Dates: start: 20180207
  11. DULOXETINE. [Concomitant]
     Active Substance: DULOXETINE
     Indication: DEPRESSION
     Route: 048
     Dates: start: 2012
  12. DULOXETINE. [Concomitant]
     Active Substance: DULOXETINE
     Indication: ANXIETY

REACTIONS (6)
  - Incorrect dose administered [Unknown]
  - Pleural effusion [Unknown]
  - Fatigue [Unknown]
  - Sinusitis [Unknown]
  - Pneumonia [Unknown]
  - White blood cell count increased [Unknown]

NARRATIVE: CASE EVENT DATE: 20180326
